FAERS Safety Report 7912690-7 (Version None)
Quarter: 2011Q4

REPORT INFORMATION
  Report Type: 
  Country: None (occurrence: None)
  Receive Date: 20111114
  Receipt Date: 20111108
  Transmission Date: 20120403
  Serious: Yes (Hospitalization, Other)
  Sender: FDA-Public Use
  Company Number: JP-ABBOTT-11P-087-0872690-00

PATIENT
  Sex: Female

DRUGS (8)
  1. HUMIRA [Suspect]
     Indication: CROHN'S DISEASE
     Dosage: (160MG)
     Route: 058
     Dates: start: 20110428, end: 20110428
  2. HUMIRA [Suspect]
     Dosage: (80MG)
  3. HUMIRA [Suspect]
     Dates: end: 20110920
  4. TPN [Concomitant]
     Indication: PRODUCT USED FOR UNKNOWN INDICATION
     Route: 048
  5. MESALAMINE [Concomitant]
     Indication: CROHN'S DISEASE
     Route: 048
  6. LOXOPROFEN SODIUM HYDRATE [Concomitant]
     Indication: PYREXIA
     Dosage: AT THE TIME OF PYREXIA
     Route: 048
  7. SODIUM GUALENATE HYDRATE/L-GLUTAMINE [Concomitant]
     Indication: PRODUCT USED FOR UNKNOWN INDICATION
     Route: 048
  8. ENTECAVIR HYDRATE [Concomitant]
     Indication: PRODUCT USED FOR UNKNOWN INDICATION
     Route: 048

REACTIONS (3)
  - UTERINE NEOPLASM [None]
  - INTESTINAL FISTULA [None]
  - SALPINGO-OOPHORITIS [None]
